FAERS Safety Report 12199336 (Version 1)
Quarter: 2016Q1

REPORT INFORMATION
  Report Type: Spontaneous
  Country: US (occurrence: None)
  Receive Date: 20160321
  Receipt Date: 20160321
  Transmission Date: 20160526
  Serious: Yes (Hospitalization)
  Sender: FDA-Public Use
  Company Number: None

PATIENT
  Age: 61 Year
  Sex: Male

DRUGS (2)
  1. INFLIXIMAB 700MG [Suspect]
     Active Substance: INFLIXIMAB
     Dosage: 700 MG Q8WKS IV
     Route: 042
  2. PREDNISONE 10MG [Suspect]
     Active Substance: PREDNISONE
     Route: 048

REACTIONS (3)
  - Colitis ulcerative [None]
  - Condition aggravated [None]
  - Clostridium test positive [None]

NARRATIVE: CASE EVENT DATE: 20150102
